FAERS Safety Report 9630022 (Version 1)
Quarter: 2013Q4

REPORT INFORMATION
  Report Type: Spontaneous
  Country: US (occurrence: US)
  Receive Date: 20131017
  Receipt Date: 20131017
  Transmission Date: 20140711
  Serious: Yes (Other)
  Sender: FDA-Public Use
  Company Number: US-ABBVIE-13P-163-1158257-00

PATIENT
  Sex: Female
  Weight: 72.64 kg

DRUGS (2)
  1. SYNTHROID [Suspect]
     Indication: HYPOTHYROIDISM
     Route: 048
     Dates: start: 2010
  2. SYNTHROID [Suspect]
     Dosage: UNKNOWN
     Dates: start: 1989, end: 2010

REACTIONS (10)
  - Cataract [Recovering/Resolving]
  - Diarrhoea [Not Recovered/Not Resolved]
  - Tachycardia [Not Recovered/Not Resolved]
  - Tremor [Not Recovered/Not Resolved]
  - Expired drug administered [Unknown]
  - Blood thyroid stimulating hormone increased [Unknown]
  - Hypertension [Not Recovered/Not Resolved]
  - Alopecia [Not Recovered/Not Resolved]
  - Alopecia [Not Recovered/Not Resolved]
  - Amnesia [Not Recovered/Not Resolved]
